FAERS Safety Report 21163457 (Version 21)
Quarter: 2024Q3

REPORT INFORMATION
  Report Type: Report from Study
  Country: CN (occurrence: CN)
  Receive Date: 20220802
  Receipt Date: 20240930
  Transmission Date: 20241017
  Serious: Yes (Hospitalization, Other)
  Sender: GILEAD
  Company Number: CN-FOSUNKITE-FOSUNKITE-20220141

PATIENT
  Age: 22 Year
  Sex: Female

DRUGS (11)
  1. AXICABTAGENE CILOLEUCEL [Suspect]
     Active Substance: AXICABTAGENE CILOLEUCEL
     Indication: Diffuse large B-cell lymphoma
     Dosage: 68 ML (1.1?10^8)
     Route: 041
     Dates: start: 20211201, end: 20211201
  2. FLUDARABINE [Suspect]
     Active Substance: FLUDARABINE PHOSPHATE
     Indication: Lymphodepletion
     Dosage: 50 MG, QD
     Route: 041
     Dates: start: 20211126, end: 20211128
  3. FLUDARABINE [Suspect]
     Active Substance: FLUDARABINE PHOSPHATE
     Dosage: 50 MG, QD
     Route: 041
     Dates: start: 20211126, end: 20211128
  4. CYCLOPHOSPHAMIDE [Suspect]
     Active Substance: CYCLOPHOSPHAMIDE
     Indication: Lymphodepletion
     Dosage: 1200 MG
     Route: 041
     Dates: start: 20211128, end: 20211128
  5. SINTILIMAB [Suspect]
     Active Substance: SINTILIMAB
     Indication: Diffuse large B-cell lymphoma
     Dosage: 200 MG
     Route: 041
     Dates: start: 20210905, end: 20210905
  6. SINTILIMAB [Suspect]
     Active Substance: SINTILIMAB
     Dosage: 200 MG
     Route: 041
     Dates: start: 20220314, end: 20220314
  7. SINTILIMAB [Suspect]
     Active Substance: SINTILIMAB
     Dosage: 200 MG
     Route: 041
     Dates: start: 20220515, end: 20220515
  8. RITUXIMAB [Concomitant]
     Active Substance: RITUXIMAB
     Indication: Lymphodepletion
     Dosage: 600 MG
     Route: 041
     Dates: start: 20211126
  9. BENDAMUSTINE [Concomitant]
     Active Substance: BENDAMUSTINE
     Indication: Lymphodepletion
     Dosage: 150 MG
     Route: 041
     Dates: start: 20211126, end: 20211127
  10. THIOTEPA [Concomitant]
     Active Substance: THIOTEPA
     Indication: Lymphodepletion
     Dosage: 300 MG
     Route: 041
     Dates: start: 20211127
  11. RITUXIMAB [Concomitant]
     Active Substance: RITUXIMAB
     Indication: Lymphodepletion
     Dosage: 600 MG
     Route: 041
     Dates: start: 20211126

REACTIONS (17)
  - Bronchopulmonary aspergillosis [Recovered/Resolved]
  - Immune-mediated lung disease [Recovering/Resolving]
  - Pneumonia bacterial [Recovered/Resolved]
  - Cognitive disorder [Recovered/Resolved]
  - Cytokine release syndrome [Not Recovered/Not Resolved]
  - Lymphocyte count decreased [Not Recovered/Not Resolved]
  - Anaemia [Recovering/Resolving]
  - White blood cell count decreased [Recovered/Resolved]
  - Platelet count decreased [Recovered/Resolved]
  - Neutrophil count decreased [Recovered/Resolved]
  - Blood lactate dehydrogenase increased [Recovered/Resolved]
  - Alpha hydroxybutyrate dehydrogenase increased [Recovered/Resolved]
  - Blood immunoglobulin G decreased [Not Recovered/Not Resolved]
  - Diarrhoea [Recovered/Resolved]
  - Herpes zoster [Recovered/Resolved]
  - Arthralgia [Recovered/Resolved]
  - Vomiting [Recovered/Resolved]

NARRATIVE: CASE EVENT DATE: 20211201
